FAERS Safety Report 21577163 (Version 2)
Quarter: 2023Q1

REPORT INFORMATION
  Report Type: Spontaneous
  Country: CA (occurrence: CA)
  Receive Date: 20221110
  Receipt Date: 20230326
  Transmission Date: 20230418
  Serious: Yes (Hospitalization, Other)
  Sender: FDA-Public Use
  Company Number: CA-TEVA-2022-CA-2823333

PATIENT
  Age: 50 Year
  Sex: Female

DRUGS (54)
  1. AMITRIPTYLINE HYDROCHLORIDE [Interacting]
     Active Substance: AMITRIPTYLINE HYDROCHLORIDE
     Indication: Complex regional pain syndrome
     Route: 065
  2. AMITRIPTYLINE HYDROCHLORIDE [Interacting]
     Active Substance: AMITRIPTYLINE HYDROCHLORIDE
     Route: 065
  3. AMLODIPINE BESYLATE [Interacting]
     Active Substance: AMLODIPINE BESYLATE
     Indication: Complex regional pain syndrome
     Route: 065
  4. CLONIDINE [Interacting]
     Active Substance: CLONIDINE
     Indication: Complex regional pain syndrome
     Route: 065
  5. DILTIAZEM HYDROCHLORIDE [Interacting]
     Active Substance: DILTIAZEM HYDROCHLORIDE
     Indication: Complex regional pain syndrome
     Route: 065
  6. MAGNESIUM [Interacting]
     Active Substance: MAGNESIUM
     Indication: Complex regional pain syndrome
     Route: 065
  7. MEMANTINE HYDROCHLORIDE [Interacting]
     Active Substance: MEMANTINE HYDROCHLORIDE
     Indication: Complex regional pain syndrome
     Route: 065
  8. MEMANTINE HYDROCHLORIDE [Interacting]
     Active Substance: MEMANTINE HYDROCHLORIDE
     Route: 065
  9. METOPROLOL TARTRATE [Interacting]
     Active Substance: METOPROLOL TARTRATE
     Indication: Complex regional pain syndrome
     Route: 065
  10. METOPROLOL TARTRATE [Interacting]
     Active Substance: METOPROLOL TARTRATE
     Route: 065
  11. MEXILETINE [Interacting]
     Active Substance: MEXILETINE
     Indication: Complex regional pain syndrome
     Route: 065
  12. MONTELUKAST [Interacting]
     Active Substance: MONTELUKAST SODIUM
     Indication: Complex regional pain syndrome
     Route: 065
  13. MYCOPHENOLATE MOFETIL [Interacting]
     Active Substance: MYCOPHENOLATE MOFETIL
     Indication: Complex regional pain syndrome
     Route: 065
  14. PREDNISONE [Interacting]
     Active Substance: PREDNISONE
     Indication: Complex regional pain syndrome
     Route: 065
  15. PREDNISONE [Interacting]
     Active Substance: PREDNISONE
     Dosage: 85 MILLIGRAM DAILY;
     Route: 065
  16. PREDNISONE [Interacting]
     Active Substance: PREDNISONE
     Route: 065
  17. PREDNISONE [Interacting]
     Active Substance: PREDNISONE
     Route: 065
  18. PREDNISONE [Interacting]
     Active Substance: PREDNISONE
     Route: 065
  19. PREDNISONE [Interacting]
     Active Substance: PREDNISONE
     Dosage: 95 MILLIGRAM DAILY;
     Route: 065
  20. PREGABALIN [Interacting]
     Active Substance: PREGABALIN
     Indication: Complex regional pain syndrome
     Route: 065
  21. SPIRONOLACTONE [Interacting]
     Active Substance: SPIRONOLACTONE
     Indication: Complex regional pain syndrome
     Route: 065
  22. ANAKINRA [Interacting]
     Active Substance: ANAKINRA
     Indication: Complex regional pain syndrome
     Route: 065
  23. VITAMIN B2 [Interacting]
     Active Substance: RIBOFLAVIN
     Indication: Complex regional pain syndrome
     Route: 065
  24. VITAMIN B2 [Interacting]
     Active Substance: RIBOFLAVIN
     Indication: Migraine prophylaxis
  25. APREMILAST [Interacting]
     Active Substance: APREMILAST
     Indication: Complex regional pain syndrome
     Route: 065
  26. BUMETANIDE [Interacting]
     Active Substance: BUMETANIDE
     Indication: Complex regional pain syndrome
     Route: 065
  27. CALCITONIN [Interacting]
     Active Substance: CALCITONIN
     Indication: Complex regional pain syndrome
     Route: 065
  28. CALCITONIN [Interacting]
     Active Substance: CALCITONIN
     Route: 065
  29. CAPSAICIN [Interacting]
     Active Substance: CAPSAICIN
     Indication: Complex regional pain syndrome
     Route: 061
  30. CIMETIDINE [Interacting]
     Active Substance: CIMETIDINE
     Indication: Complex regional pain syndrome
     Route: 065
  31. ERELZI [Interacting]
     Active Substance: ETANERCEPT-SZZS
     Indication: Complex regional pain syndrome
     Route: 065
  32. ERELZI [Interacting]
     Active Substance: ETANERCEPT-SZZS
     Route: 065
  33. HYDROXYCHLOROQUINE SULFATE [Interacting]
     Active Substance: HYDROXYCHLOROQUINE SULFATE
     Indication: Complex regional pain syndrome
     Route: 065
  34. IBUDILAST [Interacting]
     Active Substance: IBUDILAST
     Indication: Complex regional pain syndrome
     Route: 065
  35. KETAMINE [Interacting]
     Active Substance: KETAMINE
     Indication: Complex regional pain syndrome
     Route: 048
  36. KETAMINE [Interacting]
     Active Substance: KETAMINE
     Route: 048
  37. KETAMINE [Interacting]
     Active Substance: KETAMINE
     Route: 042
  38. LIDOCAINE HYDROCHLORIDE [Interacting]
     Active Substance: LIDOCAINE HYDROCHLORIDE
     Indication: Complex regional pain syndrome
     Route: 042
  39. LIDOCAINE HYDROCHLORIDE [Interacting]
     Active Substance: LIDOCAINE HYDROCHLORIDE
     Route: 061
  40. LITHIUM CARBONATE [Interacting]
     Active Substance: LITHIUM CARBONATE
     Indication: Complex regional pain syndrome
     Route: 065
  41. MAGNESIUM GLUCONATE [Interacting]
     Active Substance: MAGNESIUM GLUCONATE
     Indication: Complex regional pain syndrome
     Route: 065
  42. MAGNESIUM GLUCONATE [Interacting]
     Active Substance: MAGNESIUM GLUCONATE
     Indication: Migraine prophylaxis
  43. ACETYLCYSTEINE [Interacting]
     Active Substance: ACETYLCYSTEINE
     Indication: Complex regional pain syndrome
     Route: 065
  44. NALTREXONE HYDROCHLORIDE [Interacting]
     Active Substance: NALTREXONE HYDROCHLORIDE
     Indication: Complex regional pain syndrome
     Dosage: 4.5 MILLIGRAM DAILY;
     Route: 065
  45. PENTOXIFYLLINE [Interacting]
     Active Substance: PENTOXIFYLLINE
     Indication: Complex regional pain syndrome
     Route: 065
  46. PALMIDROL [Interacting]
     Active Substance: PALMIDROL
     Indication: Complex regional pain syndrome
     Route: 065
  47. RIBOFLAVIN [Interacting]
     Active Substance: RIBOFLAVIN
     Indication: Complex regional pain syndrome
     Route: 065
  48. RIBOFLAVIN [Interacting]
     Active Substance: RIBOFLAVIN
     Indication: Migraine prophylaxis
  49. VITAMIN B2 [Interacting]
     Active Substance: RIBOFLAVIN
     Indication: Complex regional pain syndrome
     Route: 065
  50. VITAMIN B2 [Interacting]
     Active Substance: RIBOFLAVIN
     Indication: Migraine prophylaxis
  51. VITAMIN C [Interacting]
     Active Substance: ASCORBIC ACID
     Indication: Complex regional pain syndrome
     Route: 065
  52. ACETYLCYSTEINE [Suspect]
     Active Substance: ACETYLCYSTEINE
     Indication: Complex regional pain syndrome
     Route: 065
  53. EZETIMIBE [Concomitant]
     Active Substance: EZETIMIBE
     Indication: Hyperlipidaemia
     Route: 065
  54. TRAZODONE [Concomitant]
     Active Substance: TRAZODONE HYDROCHLORIDE
     Indication: Insomnia
     Route: 065

REACTIONS (21)
  - Body tinea [Recovered/Resolved]
  - Cataract [Recovered/Resolved]
  - Cellulitis [Recovered/Resolved]
  - Contusion [Recovered/Resolved]
  - Fatigue [Recovered/Resolved]
  - Herpes zoster [Recovered/Resolved]
  - Hyperlipidaemia [Recovered/Resolved]
  - Hypertension [Recovered/Resolved]
  - Impaired quality of life [Recovered/Resolved]
  - Impaired work ability [Recovered/Resolved]
  - Infection susceptibility increased [Recovered/Resolved]
  - Insomnia [Recovered/Resolved]
  - Oral herpes [Recovered/Resolved]
  - Poor quality sleep [Recovered/Resolved]
  - Purpura [Recovered/Resolved]
  - Skin disorder [Recovered/Resolved]
  - Glucose tolerance impaired [Recovered/Resolved]
  - Bone density decreased [Recovered/Resolved]
  - Weight increased [Recovered/Resolved]
  - Inhibitory drug interaction [Recovered/Resolved]
  - Drug ineffective [Recovered/Resolved]
